FAERS Safety Report 4335199-9 (Version None)
Quarter: 2004Q2

REPORT INFORMATION
  Report Type: 
  Country: None (occurrence: None)
  Receive Date: 20040408
  Receipt Date: 20040326
  Transmission Date: 20050107
  Serious: Yes (Other)
  Sender: FDA-Public Use
  Company Number: PHEH2004US03542

PATIENT
  Age: 76 Year
  Sex: Male

DRUGS (14)
  1. GLEEVEC [Suspect]
     Indication: CHRONIC MYELOID LEUKAEMIA
     Dosage: 400 MG, QD
     Route: 048
     Dates: start: 20021201, end: 20040318
  2. GLEEVEC [Suspect]
     Dosage: 600 MG, QD
     Route: 048
     Dates: start: 20040319
  3. PRILOSEC [Concomitant]
     Indication: GASTROOESOPHAGEAL REFLUX DISEASE
  4. ALLOPURINOL [Concomitant]
     Indication: GOUT
  5. TEGRETOL [Concomitant]
     Indication: DIABETIC NEUROPATHY
  6. NEURONTIN [Concomitant]
     Indication: DIABETIC NEUROPATHY
  7. AVANDIA [Concomitant]
     Indication: DIABETES MELLITUS NON-INSULIN-DEPENDENT
  8. LANTUS [Concomitant]
     Indication: DIABETES MELLITUS NON-INSULIN-DEPENDENT
  9. HUMALOG [Concomitant]
     Indication: DIABETES MELLITUS NON-INSULIN-DEPENDENT
  10. LEXAPRO [Concomitant]
     Indication: DEPRESSION
  11. COZAAR [Concomitant]
  12. DILTIAZEM [Concomitant]
  13. ASPIRIN [Concomitant]
     Dosage: 81 MG, QD
  14. LIPITOR [Concomitant]
     Indication: BLOOD CHOLESTEROL INCREASED
     Dosage: UNK, UNK

REACTIONS (3)
  - COLON OPERATION [None]
  - COLON POLYPECTOMY [None]
  - DIARRHOEA [None]
